FAERS Safety Report 12429031 (Version 4)
Quarter: 2016Q3

REPORT INFORMATION
  Report Type: Report from Study
  Country: US (occurrence: US)
  Receive Date: 20160602
  Receipt Date: 20160803
  Transmission Date: 20161109
  Serious: Yes (Death, Hospitalization, Other)
  Sender: FDA-Public Use
  Company Number: US-JNJFOC-20160529608

PATIENT
  Age: 71 Year
  Sex: Male

DRUGS (14)
  1. OMEPRAZOLE. [Concomitant]
     Active Substance: OMEPRAZOLE
  2. ALLOPURINOL. [Concomitant]
     Active Substance: ALLOPURINOL
  3. BUDESONIDE. [Concomitant]
     Active Substance: BUDESONIDE
  4. IMBRUVICA [Suspect]
     Active Substance: IBRUTINIB
     Indication: CHRONIC LYMPHOCYTIC LEUKAEMIA
     Route: 048
     Dates: start: 20160322
  5. IMBRUVICA [Suspect]
     Active Substance: IBRUTINIB
     Indication: CHRONIC LYMPHOCYTIC LEUKAEMIA
     Route: 048
     Dates: start: 2016, end: 201605
  6. PRAVASTATIN. [Concomitant]
     Active Substance: PRAVASTATIN
  7. IMBRUVICA [Suspect]
     Active Substance: IBRUTINIB
     Indication: CHRONIC LYMPHOCYTIC LEUKAEMIA
     Route: 048
     Dates: start: 201605, end: 2016
  8. MAGNESIUM OXIDE. [Concomitant]
     Active Substance: MAGNESIUM OXIDE
  9. FOLIC ACID. [Concomitant]
     Active Substance: FOLIC ACID
  10. METOPROLOL. [Concomitant]
     Active Substance: METOPROLOL
  11. OLANZAPINE. [Concomitant]
     Active Substance: OLANZAPINE
  12. ALBUTEROL. [Concomitant]
     Active Substance: ALBUTEROL
  13. SERTRALINE [Concomitant]
     Active Substance: SERTRALINE HYDROCHLORIDE
  14. SPIRONOLACTONE. [Concomitant]
     Active Substance: SPIRONOLACTONE

REACTIONS (6)
  - Death [Fatal]
  - Coronary artery disease [Unknown]
  - Pulmonary pain [Unknown]
  - Dyspnoea [Not Recovered/Not Resolved]
  - Productive cough [Unknown]
  - Contusion [Recovering/Resolving]

NARRATIVE: CASE EVENT DATE: 20160525
